FAERS Safety Report 24340275 (Version 1)
Quarter: 2024Q3

REPORT INFORMATION
  Report Type: Spontaneous
  Country: US (occurrence: None)
  Receive Date: 20240919
  Receipt Date: 20240919
  Transmission Date: 20241017
  Serious: No
  Sender: Public
  Company Number: None

PATIENT
  Sex: Male

DRUGS (1)
  1. VIGABATRIN [Suspect]
     Active Substance: VIGABATRIN
     Dosage: FREQUENCY : TWICE A DAY;?OTHER ROUTE : G-TUBE;?
     Route: 050
     Dates: start: 202112

REACTIONS (3)
  - Rhinovirus infection [None]
  - Seizure [None]
  - Pneumonia aspiration [None]
